FAERS Safety Report 18867325 (Version 1)
Quarter: 2021Q1

REPORT INFORMATION
  Report Type: Spontaneous
  Country: US (occurrence: US)
  Receive Date: 20210209
  Receipt Date: 20210209
  Transmission Date: 20210420
  Serious: Yes (Hospitalization)
  Sender: FDA-Public Use
  Company Number: None

PATIENT
  Age: 56 Year
  Sex: Male
  Weight: 97.5 kg

DRUGS (1)
  1. KYMRIAH [Suspect]
     Active Substance: TISAGENLECLEUCEL
     Indication: DIFFUSE LARGE B-CELL LYMPHOMA
     Dosage: ?          OTHER FREQUENCY:3.7X10^8CAR+T ONCE;?
     Route: 042
     Dates: start: 20200922, end: 20200922

REACTIONS (7)
  - Atrial fibrillation [None]
  - Pulmonary embolism [None]
  - Deep vein thrombosis [None]
  - Respiratory distress [None]
  - Supraventricular tachycardia [None]
  - Back pain [None]
  - Dyspnoea [None]

NARRATIVE: CASE EVENT DATE: 20201020
